FAERS Safety Report 6093119-3 (Version None)
Quarter: 2009Q1

REPORT INFORMATION
  Report Type: 
  Country: None (occurrence: None)
  Receive Date: 20090226
  Receipt Date: 20090218
  Transmission Date: 20090719
  Serious: Yes (Other)
  Sender: FDA-Public Use
  Company Number: CA-ASTRAZENECA-2009UW04655

PATIENT
  Sex: Female

DRUGS (5)
  1. SYMBICORT [Suspect]
     Indication: BRONCHITIS
     Dosage: 200/6
     Route: 055
     Dates: start: 20090212, end: 20090213
  2. FISH OIL [Concomitant]
  3. VITAMIN D [Concomitant]
  4. VITAMIN [Concomitant]
  5. NORVOMOXIN [Concomitant]

REACTIONS (8)
  - AGEUSIA [None]
  - ANOSMIA [None]
  - BLINDNESS [None]
  - BLOODY DISCHARGE [None]
  - DIZZINESS [None]
  - DYSPHONIA [None]
  - EPISTAXIS [None]
  - OCULAR HYPERAEMIA [None]
